FAERS Safety Report 15987025 (Version 2)
Quarter: 2019Q1

REPORT INFORMATION
  Report Type: Spontaneous
  Country: US (occurrence: US)
  Receive Date: 20190220
  Receipt Date: 20190314
  Transmission Date: 20190418
  Serious: Yes (Other)
  Sender: FDA-Public Use
  Company Number: US-ASTRAZENECA-2018SF22126

PATIENT
  Sex: Male

DRUGS (27)
  1. PROTONIX [Suspect]
     Active Substance: PANTOPRAZOLE SODIUM
     Route: 065
     Dates: start: 200203, end: 201704
  2. AZITHROMYCIN ANHYDROUS. [Concomitant]
     Active Substance: AZITHROMYCIN ANHYDROUS
  3. PREVACID [Suspect]
     Active Substance: LANSOPRAZOLE
     Route: 065
     Dates: start: 20070214
  4. PREVACID [Suspect]
     Active Substance: LANSOPRAZOLE
     Route: 065
     Dates: start: 20020325, end: 20120123
  5. PEPCID [Concomitant]
     Active Substance: FAMOTIDINE
  6. NEXIUM I.V. [Suspect]
     Active Substance: ESOMEPRAZOLE SODIUM
     Route: 042
     Dates: start: 200203, end: 201704
  7. PRILOSEC OTC [Suspect]
     Active Substance: OMEPRAZOLE MAGNESIUM
     Route: 048
     Dates: start: 200203, end: 201704
  8. PREVACID [Suspect]
     Active Substance: LANSOPRAZOLE
     Route: 065
     Dates: start: 20040323
  9. PROTONIX [Suspect]
     Active Substance: PANTOPRAZOLE SODIUM
     Route: 065
     Dates: start: 20160223
  10. PROTONIX [Suspect]
     Active Substance: PANTOPRAZOLE SODIUM
     Route: 065
     Dates: start: 200203, end: 201704
  11. BUPROPION. [Concomitant]
     Active Substance: BUPROPION
  12. PREVACID 24 HR [Suspect]
     Active Substance: LANSOPRAZOLE
     Route: 065
     Dates: start: 200203, end: 201704
  13. GEMFIBROZIL. [Concomitant]
     Active Substance: GEMFIBROZIL
  14. DOCUSATE [Concomitant]
     Active Substance: DOCUSATE
  15. TAMSULOSIN [Concomitant]
     Active Substance: TAMSULOSIN
  16. PREVACID [Suspect]
     Active Substance: LANSOPRAZOLE
     Route: 065
     Dates: start: 20020326
  17. AXIRON [Concomitant]
     Active Substance: TESTOSTERONE
  18. OXYCODONE [Concomitant]
     Active Substance: OXYCODONE
  19. TAMSULOSIN [Concomitant]
     Active Substance: TAMSULOSIN
  20. NEXIUM [Suspect]
     Active Substance: ESOMEPRAZOLE MAGNESIUM
     Route: 048
     Dates: start: 200203, end: 201704
  21. PROTONIX [Suspect]
     Active Substance: PANTOPRAZOLE SODIUM
     Route: 065
     Dates: start: 20051021, end: 20170417
  22. NEXIUM 24HR [Suspect]
     Active Substance: ESOMEPRAZOLE MAGNESIUM
     Route: 048
     Dates: start: 200203, end: 201704
  23. PRILOSEC [Suspect]
     Active Substance: OMEPRAZOLE MAGNESIUM
     Route: 048
     Dates: start: 200203, end: 201704
  24. LEVOTHYROXINE. [Concomitant]
     Active Substance: LEVOTHYROXINE
  25. PRILOSEC [Suspect]
     Active Substance: OMEPRAZOLE MAGNESIUM
     Route: 048
     Dates: start: 20071107, end: 20111202
  26. PREVACID [Suspect]
     Active Substance: LANSOPRAZOLE
     Route: 065
     Dates: start: 200203, end: 201704
  27. PROTONIX [Suspect]
     Active Substance: PANTOPRAZOLE SODIUM
     Route: 065
     Dates: start: 20071114

REACTIONS (3)
  - Renal injury [Unknown]
  - Acute kidney injury [Unknown]
  - Renal failure [Unknown]
